FAERS Safety Report 10052545 (Version 1)
Quarter: 2014Q1

REPORT INFORMATION
  Report Type: Spontaneous
  Country: US (occurrence: None)
  Receive Date: 20140331
  Receipt Date: 20140331
  Transmission Date: 20141002
  Serious: Yes (Other)
  Sender: FDA-Public Use
  Company Number: 2014AP002304

PATIENT
  Age: 5 Year
  Sex: Male

DRUGS (8)
  1. CYCLOSPORINE [Suspect]
     Indication: FOCAL SEGMENTAL GLOMERULOSCLEROSIS
  2. PREDNISOLONE [Suspect]
     Indication: PROTEINURIA
     Route: 048
  3. CANDESARTAN CILEXETIL [Suspect]
     Indication: PROTEINURIA
  4. TACROLIMUS [Suspect]
     Indication: FOCAL SEGMENTAL GLOMERULOSCLEROSIS
  5. ENALAPRIL [Concomitant]
  6. MONTELUKAST SODIUM [Concomitant]
  7. LEVALBUTEROL [Concomitant]
  8. HYDROCHLORIDE [Concomitant]

REACTIONS (2)
  - Anaemia [None]
  - Erythropoiesis abnormal [None]
